FAERS Safety Report 9355496 (Version 2)
Quarter: 2013Q3

REPORT INFORMATION
  Report Type: Spontaneous
  Country: IT (occurrence: IT)
  Receive Date: 20130619
  Receipt Date: 20130730
  Transmission Date: 20140515
  Serious: Yes (Hospitalization)
  Sender: FDA-Public Use
  Company Number: IT-PFIZER INC-2013181817

PATIENT
  Age: 73 Year
  Sex: Male

DRUGS (5)
  1. TORVAST [Suspect]
     Indication: HYPERLIPIDAEMIA
     Dosage: 10 MG, DAILY
     Route: 048
     Dates: start: 20130108, end: 20130324
  2. PANTOPRAZOLE [Concomitant]
     Dosage: 20 MG, UNK
     Route: 048
  3. ALLOPURINOL [Concomitant]
     Dosage: 300 MG, UNK
     Route: 048
  4. VENTOLIN [Concomitant]
     Dosage: UNK
  5. GAVISCON [Concomitant]
     Dosage: UNK
     Route: 048

REACTIONS (2)
  - Pancreatitis [Recovered/Resolved]
  - Presyncope [Recovered/Resolved]
